FAERS Safety Report 6211621 (Version 14)
Quarter: 2013Q3

REPORT INFORMATION
  Report Type: Spontaneous
  Country: US (occurrence: US)
  Receive Date: 20070110
  Receipt Date: 20130805
  Transmission Date: 20140515
  Serious: Yes (Hospitalization, Other)
  Sender: FDA-Public Use
  Company Number: US-ROCHE-443572

PATIENT
  Age: 39 Year
  Sex: Female
  Weight: 79.4 kg

DRUGS (2)
  1. ACCUTANE [Suspect]
     Indication: ACNE
     Route: 048
     Dates: start: 198601, end: 198606
  2. ORTHO TRI-CYCLEN [Concomitant]
     Indication: CONTRACEPTION

REACTIONS (19)
  - Crohn^s disease [Not Recovered/Not Resolved]
  - Inflammatory bowel disease [Not Recovered/Not Resolved]
  - Proctitis [Unknown]
  - Colitis ulcerative [Unknown]
  - Depression [Unknown]
  - Colitis [Unknown]
  - Colitis [Not Recovered/Not Resolved]
  - Oesophagitis [Recovered/Resolved]
  - Squamous cell carcinoma of the vulva [Unknown]
  - Large intestine polyp [Unknown]
  - Anxiety [Unknown]
  - Irritable bowel syndrome [Unknown]
  - Panic attack [Unknown]
  - Depersonalisation [Unknown]
  - Anaemia [Not Recovered/Not Resolved]
  - Arthritis [Unknown]
  - Back pain [Not Recovered/Not Resolved]
  - Clostridium difficile infection [Recovered/Resolved]
  - Gastritis [Unknown]
